FAERS Safety Report 4404692-2 (Version None)
Quarter: 2004Q3

REPORT INFORMATION
  Report Type: 
  Country: None (occurrence: None)
  Receive Date: 20040720
  Receipt Date: 20040203
  Transmission Date: 20050211
  Serious: No
  Sender: FDA-Public Use
  Company Number: LUP-0003 (0) 2004-00437

PATIENT
  Age: 48 Year
  Sex: Female
  Weight: 63.5036 kg

DRUGS (10)
  1. CEFUROXIME AXETIL (CEFUROXIME AXETIL) (500 MILLIGRAM, TABLETS) [Suspect]
     Indication: SINUSITIS
     Dosage: 1000 MG (500 MG, 2 IN 1 D), ORAL
     Route: 048
     Dates: start: 20040202
  2. VANCENASE [Concomitant]
  3. ADVAIR (SERETIDE MITE) (INHALANT) [Concomitant]
  4. SYNTHROID (LEVOTHYROXINE SODIUM) (PILL) [Concomitant]
  5. PARACETAMOL [Concomitant]
  6. ADVIL [Concomitant]
  7. CEFTIN [Concomitant]
  8. AMOXICILLIN [Concomitant]
  9. AUGMENTIN (AMOXICILLIN W/CLAVULANATE POTASSIUM) [Concomitant]
  10. AVELOX [Concomitant]

REACTIONS (2)
  - DYSGEUSIA [None]
  - PHARMACEUTICAL PRODUCT COMPLAINT [None]
